FAERS Safety Report 13694683 (Version 1)
Quarter: 2017Q2

REPORT INFORMATION
  Report Type: Spontaneous
  Country: US (occurrence: US)
  Receive Date: 20170627
  Receipt Date: 20170627
  Transmission Date: 20170830
  Serious: No
  Sender: FDA-Public Use
  Company Number: US-MORTON GROVE PHARMACEUTICALS, INC.-2022555

PATIENT
  Age: 70 Year
  Sex: Male
  Weight: 65.91 kg

DRUGS (1)
  1. MEGESTROL ACETATE. [Suspect]
     Active Substance: MEGESTROL ACETATE
     Dates: start: 201701, end: 201702

REACTIONS (3)
  - Agitation [None]
  - Irritability [None]
  - Anxiety [None]
